FAERS Safety Report 8798579 (Version 1)
Quarter: 2012Q4

REPORT INFORMATION
  Report Type: 
  Country: US (occurrence: US)
  Receive Date: 20120920
  Receipt Date: 20120920
  Transmission Date: 20130627
  Serious: Yes (Other)
  Sender: FDA-Public Use
  Company Number: US-BAYER-2012-097477

PATIENT
  Age: 28 Year
  Sex: Female

DRUGS (8)
  1. OCELLA [Suspect]
     Indication: CONTRACEPTION
     Dosage: UNK
     Dates: start: 20090626, end: 20100624
  2. OCELLA [Suspect]
     Indication: CONTRACEPTION
     Dosage: UNK
     Dates: start: 200906, end: 20100624
  3. METRONIDAZOLE [Concomitant]
     Indication: VAGINITIS BACTERIAL
     Dosage: 500 mg, BID, 5 days
     Route: 048
     Dates: start: 20100331
  4. DOXYCYCLINE [Concomitant]
     Indication: WHITE BLOOD CELL COUNT INCREASED
     Dosage: 100 mg, BID, 7 days
     Route: 048
     Dates: start: 20100331
  5. NASAL SPRAY [Concomitant]
     Route: 045
  6. METROGEL [Concomitant]
     Dosage: 5 nights
     Route: 067
  7. MOTRIN [Concomitant]
     Dosage: UNK UNK, PRN
  8. AMITRIPTYLINE [Concomitant]
     Indication: PAIN
     Dosage: 10 mg, HS

REACTIONS (5)
  - Deep vein thrombosis [None]
  - Pain in extremity [None]
  - Muscle tightness [None]
  - Skin discolouration [None]
  - Oedema peripheral [None]
